FAERS Safety Report 17375158 (Version 1)
Quarter: 2020Q1

REPORT INFORMATION
  Report Type: Spontaneous
  Country: US (occurrence: US)
  Receive Date: 20200205
  Receipt Date: 20200205
  Transmission Date: 20200409
  Serious: Yes (Disabling, Other)
  Sender: FDA-Public Use
  Company Number: US-PFIZER INC-2020044455

PATIENT
  Age: 40 Year
  Sex: Female
  Weight: 79.38 kg

DRUGS (1)
  1. PREMARIN [Suspect]
     Active Substance: ESTROGENS, CONJUGATED
     Dosage: 0.625 UNKNOWN UNITS TABLET BY MOUTH DAILY
     Route: 048
     Dates: start: 1969

REACTIONS (7)
  - Rheumatoid arthritis [Unknown]
  - Postoperative wound infection [Unknown]
  - Endometriosis [Unknown]
  - Vaginal haemorrhage [Unknown]
  - Neuropathy peripheral [Unknown]
  - Joint injury [Unknown]
  - Plantar fasciitis [Unknown]

NARRATIVE: CASE EVENT DATE: 2019
